FAERS Safety Report 8545754-8 (Version None)
Quarter: 2012Q3

REPORT INFORMATION
  Report Type: 
  Country: None (occurrence: None)
  Receive Date: 20120727
  Receipt Date: 20120719
  Transmission Date: 20120928
  Serious: Yes (Other)
  Sender: FDA-Public Use
  Company Number: GB-ASTRAZENECA-2012SE51019

PATIENT
  Sex: Male

DRUGS (2)
  1. QUETIAPINE [Suspect]
     Route: 048
     Dates: start: 20120627
  2. LITHIUM CARBONATE [Concomitant]
     Dates: start: 19920101

REACTIONS (5)
  - ERECTILE DYSFUNCTION [None]
  - ANHEDONIA [None]
  - TARDIVE DYSKINESIA [None]
  - BRUXISM [None]
  - SEDATION [None]
